FAERS Safety Report 6185906-8 (Version None)
Quarter: 2009Q2

REPORT INFORMATION
  Report Type: 
  Country: None (occurrence: None)
  Receive Date: 20090511
  Receipt Date: 20090504
  Transmission Date: 20091009
  Serious: Yes (Death, Hospitalization, Other)
  Sender: FDA-Public Use
  Company Number: IN-ROXANE LABORATORIES, INC.-2009-RO-00452RO

PATIENT
  Age: 19 Year
  Sex: Male

DRUGS (9)
  1. DEXAMETHASONE 4MG TAB [Suspect]
     Dosage: 1MG
  2. ALBENDAZOLE [Suspect]
     Indication: STRONGYLOIDIASIS
     Dosage: 800MG
     Route: 048
  3. ALBENDAZOLE [Suspect]
     Indication: STREPTOCOCCAL BACTERAEMIA
     Dosage: 800MG
     Route: 048
  4. ALBENDAZOLE [Suspect]
     Indication: ENTEROBACTER BACTERAEMIA
  5. ALBENDAZOLE [Suspect]
     Indication: PROTEUS INFECTION
  6. ANTIBIOTICS [Suspect]
     Indication: STREPTOCOCCAL BACTERAEMIA
  7. ANTIBIOTICS [Suspect]
     Indication: ENTEROBACTER BACTERAEMIA
     Route: 042
  8. ANTIBIOTICS [Suspect]
     Indication: PROTEUS INFECTION
  9. IVERMECTIN [Suspect]
     Dosage: 12MG

REACTIONS (19)
  - ABDOMINAL PAIN [None]
  - BLOOD PRESSURE IMMEASURABLE [None]
  - BODY TINEA [None]
  - CARDIAC ARREST [None]
  - ENTEROBACTER BACTERAEMIA [None]
  - FUNGAL INFECTION [None]
  - HYPOVOLAEMIC SHOCK [None]
  - OEDEMA PERIPHERAL [None]
  - ONYCHOMYCOSIS [None]
  - PROTEUS INFECTION [None]
  - PULSE ABSENT [None]
  - PURPURA [None]
  - RALES [None]
  - SCROTAL OEDEMA [None]
  - SECONDARY ADRENOCORTICAL INSUFFICIENCY [None]
  - SEPSIS [None]
  - SKIN ULCER [None]
  - STREPTOCOCCAL BACTERAEMIA [None]
  - STRONGYLOIDIASIS [None]
